FAERS Safety Report 9393603 (Version 1)
Quarter: 2013Q3

REPORT INFORMATION
  Report Type: Spontaneous
  Country: BR (occurrence: BR)
  Receive Date: 20130710
  Receipt Date: 20130710
  Transmission Date: 20140515
  Serious: Yes (Hospitalization)
  Sender: FDA-Public Use
  Company Number: BR-GLAXOSMITHKLINE-A1031793A

PATIENT
  Sex: Male

DRUGS (2)
  1. COMBODART [Suspect]
     Indication: PROSTATIC DISORDER
     Dosage: 1CAP AT NIGHT
     Route: 048
     Dates: start: 20130618
  2. FERROUS SULFATE [Concomitant]

REACTIONS (2)
  - Hospitalisation [Unknown]
  - Oedema peripheral [Not Recovered/Not Resolved]
